FAERS Safety Report 19082807 (Version 2)
Quarter: 2021Q3

REPORT INFORMATION
  Report Type: Spontaneous
  Country: PR (occurrence: PR)
  Receive Date: 20210401
  Receipt Date: 20210823
  Transmission Date: 20211014
  Serious: No
  Sender: FDA-Public Use
  Company Number: PR-PFIZER INC-2021338810

PATIENT
  Age: 71 Year
  Sex: Female

DRUGS (2)
  1. XELJANZ XR [Suspect]
     Active Substance: TOFACITINIB CITRATE
     Dosage: 11 MG, DAILY (1 TABLET)
     Route: 048
     Dates: start: 20200814
  2. XELJANZ XR [Suspect]
     Active Substance: TOFACITINIB CITRATE
     Indication: RHEUMATOID ARTHRITIS
     Dosage: 11 MG, DAILY
     Dates: start: 20200812

REACTIONS (7)
  - Haemoglobin decreased [Unknown]
  - Gastritis [Unknown]
  - Reflux gastritis [Unknown]
  - Pruritus [Unknown]
  - Product dose omission in error [Unknown]
  - Throat irritation [Unknown]
  - Pain [Unknown]
